FAERS Safety Report 5918323-3 (Version None)
Quarter: 2008Q4

REPORT INFORMATION
  Report Type: 
  Country: None (occurrence: None)
  Receive Date: 20081010
  Receipt Date: 20080926
  Transmission Date: 20090506
  Serious: Yes (Other)
  Sender: FDA-Public Use
  Company Number: 238950J08USA

PATIENT
  Age: 36 Year
  Sex: Female

DRUGS (4)
  1. REBIF [Suspect]
     Indication: MULTIPLE SCLEROSIS
     Dosage: 44 MCG, 3 IN 1 WEEKS, SUBCUTANEOUS
     Route: 058
     Dates: start: 20080505
  2. LEXAPRO [Concomitant]
  3. PROVIGIL [Concomitant]
  4. NEURONTIN [Concomitant]

REACTIONS (3)
  - ADNEXA UTERI PAIN [None]
  - CONDITION AGGRAVATED [None]
  - URINARY TRACT INFECTION [None]
